FAERS Safety Report 15121090 (Version 1)
Quarter: 2018Q3

REPORT INFORMATION
  Report Type: Spontaneous
  Country: US (occurrence: US)
  Receive Date: 20180613
  Receipt Date: 20180613
  Transmission Date: 20181010
  Serious: Yes (Other)
  Sender: FDA-Public Use
  Company Number: None

PATIENT
  Age: 59 Year
  Sex: Female
  Weight: 54 kg

DRUGS (15)
  1. CYMBALTA [Concomitant]
     Active Substance: DULOXETINE HYDROCHLORIDE
  2. AMLODIPINE [Concomitant]
     Active Substance: AMLODIPINE BESYLATE
  3. LISINOPRIL. [Concomitant]
     Active Substance: LISINOPRIL
  4. FERROUS SULFATE. [Concomitant]
     Active Substance: FERROUS SULFATE
  5. LUNESTA [Concomitant]
     Active Substance: ESZOPICLONE
  6. ZANTAC [Concomitant]
     Active Substance: RANITIDINE HYDROCHLORIDE
  7. IBUPROPHEN [Concomitant]
     Active Substance: IBUPROFEN
  8. LACTAID [Concomitant]
     Active Substance: LACTASE
  9. HYDROCO/APAP 10?325 [Suspect]
     Active Substance: ACETAMINOPHEN\HYDROCODONE
     Indication: ARTHRALGIA
     Dosage: ?          QUANTITY:87 DF DOSAGE FORM;?
     Route: 048
     Dates: start: 20180606
  10. LORATIDINE [Concomitant]
     Active Substance: LORATADINE
  11. PRO AIR INHALER [Concomitant]
  12. EROBIKA BREATHING DEVICE [Concomitant]
  13. AUGMENTING [Concomitant]
  14. HYDROCO/APAP [Concomitant]
     Active Substance: ACETAMINOPHEN\HYDROCODONE
  15. HYDROCO/APAP 10?325 [Suspect]
     Active Substance: ACETAMINOPHEN\HYDROCODONE
     Indication: BACK PAIN
     Dosage: ?          QUANTITY:87 DF DOSAGE FORM;?
     Route: 048
     Dates: start: 20180606

REACTIONS (4)
  - Product quality issue [None]
  - Product substitution issue [None]
  - Drug ineffective [None]
  - Pain [None]

NARRATIVE: CASE EVENT DATE: 20180606
